FAERS Safety Report 12487985 (Version 1)
Quarter: 2016Q2

REPORT INFORMATION
  Report Type: Report from Study
  Country: JP (occurrence: JP)
  Receive Date: 20160622
  Receipt Date: 20160622
  Transmission Date: 20160815
  Serious: Yes (Hospitalization)
  Sender: FDA-Public Use
  Company Number: JP-SA-2016SA112871

PATIENT
  Age: 68 Year
  Sex: Male

DRUGS (2)
  1. PHOSBLOCK [Suspect]
     Active Substance: FERRIC HYDROXIDE
     Route: 048
     Dates: start: 20100614
  2. NESP [Suspect]
     Active Substance: DARBEPOETIN ALFA
     Route: 042
     Dates: start: 20140630

REACTIONS (1)
  - Metastatic neoplasm [Recovering/Resolving]

NARRATIVE: CASE EVENT DATE: 20160107
